FAERS Safety Report 4954566-3 (Version None)
Quarter: 2006Q1

REPORT INFORMATION
  Report Type: 
  Country: None (occurrence: None)
  Receive Date: 20060327
  Receipt Date: 20051212
  Transmission Date: 20060701
  Serious: Yes (Hospitalization)
  Sender: FDA-Public Use
  Company Number: US-AMGEN-US161050

PATIENT
  Sex: Male

DRUGS (5)
  1. NEULASTA [Suspect]
     Indication: CHEMOTHERAPY
     Route: 058
     Dates: start: 20050101
  2. CYCLOPHOSPHAMIDE [Concomitant]
     Route: 065
     Dates: start: 20051101
  3. DOXORUBICIN HCL [Concomitant]
     Route: 065
     Dates: start: 20051101
  4. VINCRISTINE [Concomitant]
     Route: 065
     Dates: start: 20051101
  5. PREDNISONE [Concomitant]
     Route: 065
     Dates: start: 20051101

REACTIONS (5)
  - ANAEMIA [None]
  - BACK PAIN [None]
  - BLOOD URINE PRESENT [None]
  - BONE PAIN [None]
  - PYREXIA [None]
